FAERS Safety Report 4985970-5 (Version None)
Quarter: 2006Q2

REPORT INFORMATION
  Report Type: 
  Country: None (occurrence: None)
  Receive Date: 20060419
  Receipt Date: 20060406
  Transmission Date: 20061013
  Serious: Yes (Other)
  Sender: FDA-Public Use
  Company Number: SEWYE163923NOV05

PATIENT
  Age: 58 Year
  Sex: Male

DRUGS (7)
  1. RAPAMUNE [Suspect]
     Indication: PROPHYLAXIS AGAINST TRANSPLANT REJECTION
     Dosage: 5 MG 1X PER 1 DAY, ORAL
     Route: 048
     Dates: start: 20050928, end: 20051118
  2. MYCOPHENOLATE MOFETIL [Concomitant]
  3. PREDNISOLONE [Concomitant]
  4. VALACYCLOVIR [Concomitant]
  5. ATORVASTATIN CALCIUM [Concomitant]
  6. ZENAPAX [Concomitant]
  7. TRIMETHOPRIM-SULFA (SULFAMETHOXAZOLE/TRIMETHOPRIM) [Concomitant]

REACTIONS (15)
  - ANOREXIA [None]
  - BLOOD CREATININE INCREASED [None]
  - BLOOD PRESSURE FLUCTUATION [None]
  - C-REACTIVE PROTEIN INCREASED [None]
  - CHILLS [None]
  - DYSGEUSIA [None]
  - EPISTAXIS [None]
  - FATIGUE [None]
  - HAEMORRHOIDAL HAEMORRHAGE [None]
  - HEADACHE [None]
  - HEART RATE INCREASED [None]
  - HYPERSOMNIA [None]
  - MALAISE [None]
  - POSTOPERATIVE WOUND COMPLICATION [None]
  - WOUND SECRETION [None]
